FAERS Safety Report 9338907 (Version 2)
Quarter: 2013Q2

REPORT INFORMATION
  Report Type: Spontaneous
  Country: US (occurrence: US)
  Receive Date: 20130610
  Receipt Date: 20130628
  Transmission Date: 20140414
  Serious: Yes (Other)
  Sender: FDA-Public Use
  Company Number: US-PFIZER INC-2013171621

PATIENT
  Age: 69 Year
  Sex: Female

DRUGS (12)
  1. INLYTA [Suspect]
     Indication: RENAL CELL CARCINOMA
     Dosage: 5 MG, 2X/DAY
     Route: 048
     Dates: start: 20121116, end: 20130528
  2. ASPIRIN [Concomitant]
     Dosage: UNK
  3. COREG [Concomitant]
     Dosage: UNK
  4. LORTAB [Concomitant]
     Dosage: UNK
  5. RAMIPRIL [Concomitant]
     Dosage: UNK
  6. AMLODIPINE [Concomitant]
     Dosage: UNK
  7. CELEXA [Concomitant]
     Dosage: UNK
  8. ATIVAN [Concomitant]
     Dosage: UNK
  9. ZOLOFT [Concomitant]
     Dosage: UNK
  10. CYMBALTA [Concomitant]
     Dosage: UNK
  11. HYZAAR [Concomitant]
     Dosage: UNK
  12. WELCHOL [Concomitant]
     Dosage: UNK

REACTIONS (2)
  - Diarrhoea [Unknown]
  - Local swelling [Unknown]
